FAERS Safety Report 4714207-7 (Version None)
Quarter: 2005Q3

REPORT INFORMATION
  Report Type: 
  Country: None (occurrence: None)
  Receive Date: 20050712
  Receipt Date: 20050704
  Transmission Date: 20060218
  Serious: Yes (Hospitalization)
  Sender: FDA-Public Use
  Company Number: MX-2005-009913

PATIENT
  Age: 33 Year
  Sex: Female

DRUGS (8)
  1. YASMIN [Suspect]
     Indication: ORAL CONTRACEPTION
     Dosage: 1 TAB(S), 1X/DAY; ORAL
     Route: 048
     Dates: start: 20050101, end: 20050606
  2. DIIODOHYDROXYQUINOLINE [Concomitant]
  3. DIMETICONE [Concomitant]
  4. RANITIDINE [Concomitant]
  5. OMEPRAZOLE [Concomitant]
  6. PANCREATIN [Concomitant]
  7. ENZYMES (HEMICELLULASE) [Concomitant]
  8. SIMETHICONE [Concomitant]

REACTIONS (4)
  - ABORTION SPONTANEOUS [None]
  - DRUG EXPOSURE DURING PREGNANCY [None]
  - INTRA-UTERINE DEATH [None]
  - PREGNANCY ON ORAL CONTRACEPTIVE [None]
